FAERS Safety Report 10247803 (Version 1)
Quarter: 2014Q2

REPORT INFORMATION
  Report Type: Spontaneous
  Country: US (occurrence: US)
  Receive Date: 20140619
  Receipt Date: 20140619
  Transmission Date: 20141212
  Serious: Yes (Hospitalization, Other)
  Sender: FDA-Public Use
  Company Number: US-UCBSA-2014002408

PATIENT
  Age: 29 Year
  Sex: Male

DRUGS (8)
  1. LEVETIRACETAM [Suspect]
     Indication: EPILEPSY
  2. CARBAMAZEPINE [Concomitant]
     Indication: EPILEPSY
  3. LORAZEPAM [Concomitant]
  4. HALOPERIDOL [Concomitant]
     Dosage: UNK
  5. PHENYTOIN SODIUM [Concomitant]
     Indication: EPILEPSY
  6. VALPROATE [Concomitant]
     Indication: EPILEPSY
  7. COCAINE [Concomitant]
  8. MARIJUANA [Concomitant]

REACTIONS (6)
  - Homicide [Unknown]
  - Impulsive behaviour [Unknown]
  - Affective disorder [Unknown]
  - Aggression [Unknown]
  - Postictal psychosis [Recovered/Resolved]
  - Loss of consciousness [Unknown]
